FAERS Safety Report 9360037 (Version 1)
Quarter: 2013Q2

REPORT INFORMATION
  Report Type: Spontaneous
  Country: US (occurrence: None)
  Receive Date: 20130620
  Receipt Date: 20130620
  Transmission Date: 20140414
  Serious: Yes (Life-Threatening, Hospitalization)
  Sender: FDA-Public Use
  Company Number: None

PATIENT
  Age: 54 Year
  Sex: Male
  Weight: 79 kg

DRUGS (1)
  1. PRIVIGEN [Suspect]
     Indication: CHRONIC INFLAMMATORY DEMYELINATING POLYRADICULONEUROPATHY
     Route: 042
     Dates: start: 20130528

REACTIONS (3)
  - Haemolysis [None]
  - Haemoglobin decreased [None]
  - Haemoglobinuria [None]
